FAERS Safety Report 6532270-8 (Version None)
Quarter: 2010Q1

REPORT INFORMATION
  Report Type: 
  Country: None (occurrence: None)
  Receive Date: 20100108
  Receipt Date: 20100104
  Transmission Date: 20100710
  Serious: Yes (Death)
  Sender: FDA-Public Use
  Company Number: US-PFIZER INC-2010001533

PATIENT
  Age: 90 Year
  Sex: Female

DRUGS (8)
  1. GLIBENCLAMIDE [Suspect]
  2. DILTIAZEM HCL [Suspect]
  3. TENORMIN [Suspect]
  4. WARFARIN [Suspect]
  5. FUROSEMIDE [Suspect]
  6. POTASSIUM CANRENOATE AND POTASSIUM CHLORIDE AND POTASSIUM CITRATE [Suspect]
  7. METOLAZONE [Suspect]
  8. HYDRALAZINE [Suspect]

REACTIONS (1)
  - MEDICATION ERROR [None]
